FAERS Safety Report 10213957 (Version 1)
Quarter: 2014Q2

REPORT INFORMATION
  Report Type: Spontaneous
  Country: US (occurrence: None)
  Receive Date: 20140602
  Receipt Date: 20140602
  Transmission Date: 20141212
  Serious: Yes (Life-Threatening, Hospitalization)
  Sender: FDA-Public Use
  Company Number: None

PATIENT
  Age: 23 Year
  Sex: Male
  Weight: 86.18 kg

DRUGS (2)
  1. HALDOL [Suspect]
     Indication: ANXIETY
     Dosage: 1  THREE TIMES DAILY TAKEN BY MOUTH
     Route: 048
     Dates: start: 20100510, end: 20100513
  2. HALDOL [Suspect]
     Indication: AGITATION
     Dosage: 1  THREE TIMES DAILY TAKEN BY MOUTH
     Route: 048
     Dates: start: 20100510, end: 20100513

REACTIONS (3)
  - Dystonia [None]
  - Dyspnoea [None]
  - Speech disorder [None]
